FAERS Safety Report 9763554 (Version 1)
Quarter: 2013Q4

REPORT INFORMATION
  Report Type: Spontaneous
  Country: SK (occurrence: SK)
  Receive Date: 20131216
  Receipt Date: 20131216
  Transmission Date: 20140711
  Serious: Yes (Death, Other)
  Sender: FDA-Public Use
  Company Number: PHHY2013CZ145937

PATIENT
  Age: 38 Year
  Sex: Female

DRUGS (4)
  1. CISPLATIN [Suspect]
     Indication: NEOPLASM PROGRESSION
  2. GEMCITABINE [Suspect]
     Indication: NEOPLASM PROGRESSION
  3. PACLITAXEL [Suspect]
  4. CARBOPLATIN [Suspect]

REACTIONS (8)
  - Death [Fatal]
  - Venous thrombosis [Unknown]
  - Ototoxicity [Unknown]
  - Adenocarcinoma [Unknown]
  - Retroperitoneal lymphadenopathy [Unknown]
  - Metastases to lymph nodes [Unknown]
  - Small intestine carcinoma metastatic [Unknown]
  - Malignant neoplasm progression [Unknown]
